FAERS Safety Report 7237804-6 (Version None)
Quarter: 2011Q1

REPORT INFORMATION
  Report Type: 
  Country: None (occurrence: None)
  Receive Date: 20110121
  Receipt Date: 20101202
  Transmission Date: 20110831
  Serious: Yes (Other)
  Sender: FDA-Public Use
  Company Number: RU-ROCHE-753407

PATIENT
  Age: 60 Year
  Sex: Female

DRUGS (3)
  1. AVASTIN [Suspect]
     Indication: RECTAL CANCER METASTATIC
     Route: 042
  2. OXALIPLATIN [Suspect]
     Indication: RECTAL CANCER METASTATIC
     Dosage: 100 MG (DAY 1) AND 50 MG (DAY 8)
     Route: 042
  3. XELODA [Suspect]
     Indication: RECTAL CANCER METASTATIC
     Dosage: 3500 MG/DAY ON DAY 1 - 14
     Route: 048

REACTIONS (2)
  - PERIPHERAL SENSORY NEUROPATHY [None]
  - ENTERITIS [None]
